FAERS Safety Report 25211985 (Version 1)
Quarter: 2025Q2

REPORT INFORMATION
  Report Type: Spontaneous
  Country: SK (occurrence: SK)
  Receive Date: 20250418
  Receipt Date: 20250418
  Transmission Date: 20250717
  Serious: Yes (Hospitalization, Other)
  Sender: JOHNSON AND JOHNSON
  Company Number: SK-PMCS-2025000443

PATIENT
  Age: 45 Year
  Sex: Male

DRUGS (4)
  1. EDURANT [Interacting]
     Active Substance: RILPIVIRINE HYDROCHLORIDE
     Indication: HIV infection
  2. AMIODARONE [Interacting]
     Active Substance: AMIODARONE
     Indication: Atrial fibrillation
  3. AMIODARONE [Interacting]
     Active Substance: AMIODARONE
  4. DOLUTEGRAVIR [Interacting]
     Active Substance: DOLUTEGRAVIR
     Indication: HIV infection

REACTIONS (2)
  - Drug interaction [Unknown]
  - Hepatotoxicity [Unknown]
